FAERS Safety Report 19513693 (Version 1)
Quarter: 2021Q3

REPORT INFORMATION
  Report Type: Spontaneous
  Country: CN (occurrence: CN)
  Receive Date: 20210709
  Receipt Date: 20210709
  Transmission Date: 20211014
  Serious: Yes (Other)
  Sender: FDA-Public Use
  Company Number: CN-PFIZER INC-2021787972

PATIENT
  Age: 3 Year
  Sex: Female
  Weight: 12.6 kg

DRUGS (2)
  1. METHOTREXATE. [Suspect]
     Active Substance: METHOTREXATE
     Indication: NEOPLASM
     Dosage: 17.1 ML, 1X/DAY
     Route: 041
     Dates: start: 20210516, end: 20210517
  2. SODIUM CHLORIDE. [Concomitant]
     Active Substance: SODIUM CHLORIDE
     Indication: VEHICLE SOLUTION USE
     Dosage: 50 ML
     Route: 041
     Dates: start: 20210516, end: 20210517

REACTIONS (3)
  - Oral mucosal erythema [Recovering/Resolving]
  - Mouth swelling [Recovering/Resolving]
  - Ulcer [Recovering/Resolving]

NARRATIVE: CASE EVENT DATE: 20210520
